FAERS Safety Report 8271400-7 (Version None)
Quarter: 2012Q2

REPORT INFORMATION
  Report Type: 
  Country: None (occurrence: None)
  Receive Date: 20120410
  Receipt Date: 20120320
  Transmission Date: 20120825
  Serious: Yes (Hospitalization)
  Sender: FDA-Public Use
  Company Number: US-NOVEN-12US004328

PATIENT
  Age: 78 Year
  Sex: Female

DRUGS (3)
  1. FENTANYL CITRATE [Suspect]
     Dosage: UNK
     Dates: start: 20111201
  2. LYRICA [Concomitant]
     Indication: PRODUCT USED FOR UNKNOWN INDICATION
  3. FENTANYL CITRATE [Suspect]
     Indication: PAIN IN EXTREMITY
     Dosage: 75 UG/HR, EVERY 72 HRS
     Route: 062
     Dates: start: 20120312

REACTIONS (4)
  - APPLICATION SITE VESICLES [None]
  - APPLICATION SITE ERYTHEMA [None]
  - CHEST PAIN [None]
  - DRUG ADMINISTRATION ERROR [None]
